FAERS Safety Report 4927721-6 (Version None)
Quarter: 2006Q1

REPORT INFORMATION
  Report Type: 
  Country: None (occurrence: None)
  Receive Date: 20060222
  Receipt Date: 20060210
  Transmission Date: 20060701
  Serious: Yes (Hospitalization, Disabling, Other)
  Sender: FDA-Public Use
  Company Number: 2005-09-0293

PATIENT
  Age: 60 Year
  Sex: Female
  Weight: 107.9561 kg

DRUGS (6)
  1. CELESTONE SOLUSPAN [Suspect]
     Indication: PAIN
     Dosage: 6MG
     Dates: start: 20030620, end: 20030715
  2. COUMADIN [Concomitant]
  3. ASPIRIN [Concomitant]
  4. TYLENOL W/ CODEINE NO. 3 [Concomitant]
  5. NORVASC [Concomitant]
  6. TYLENOL (CAPLET) [Concomitant]

REACTIONS (9)
  - ABASIA [None]
  - ANAPHYLACTIC REACTION [None]
  - CONDITION AGGRAVATED [None]
  - EMOTIONAL DISTRESS [None]
  - INJURY [None]
  - OEDEMA PERIPHERAL [None]
  - PAIN [None]
  - PAIN IN EXTREMITY [None]
  - THROMBOSIS [None]
